FAERS Safety Report 13078316 (Version 2)
Quarter: 2017Q1

REPORT INFORMATION
  Report Type: Spontaneous
  Country: IT (occurrence: IT)
  Receive Date: 20170102
  Receipt Date: 20170207
  Transmission Date: 20170428
  Serious: Yes (Death, Hospitalization, Disabling, Other)
  Sender: FDA-Public Use
  Company Number: IT-OTSUKA-2016_030384

PATIENT
  Age: 35 Year
  Sex: Male
  Weight: 53 kg

DRUGS (3)
  1. BUSULFAN. [Suspect]
     Active Substance: BUSULFAN
     Indication: BONE MARROW TRANSPLANT
     Dosage: 0.8 MG/KG, QID (4/DAY)
     Route: 042
     Dates: start: 20160916, end: 20160916
  2. FLUDARABIN [Suspect]
     Active Substance: FLUDARABINE PHOSPHATE
     Indication: BONE MARROW TRANSPLANT
     Dosage: 48 MG, QD (1/DAY)
     Route: 042
     Dates: start: 20160916, end: 20160917
  3. BUSULFAN. [Suspect]
     Active Substance: BUSULFAN
     Dosage: 0.66 MG/KG, QID (4/DAY)
     Route: 042
     Dates: start: 20160917, end: 20160918

REACTIONS (2)
  - Neurodegenerative disorder [Fatal]
  - Condition aggravated [Fatal]

NARRATIVE: CASE EVENT DATE: 20161206
